FAERS Safety Report 13763151 (Version 1)
Quarter: 2017Q3

REPORT INFORMATION
  Report Type: Spontaneous
  Country: US (occurrence: US)
  Receive Date: 20170718
  Receipt Date: 20170718
  Transmission Date: 20171127
  Serious: Yes (Other)
  Sender: FDA-Public Use
  Company Number: None

PATIENT
  Age: 57 Year
  Sex: Female
  Weight: 101.2 kg

DRUGS (9)
  1. QVAR [Suspect]
     Active Substance: BECLOMETHASONE DIPROPIONATE
     Indication: ASTHMA
     Dosage: OTHER STRENGTH:MCG;QUANTITY:1 PUFF(S);?
     Route: 055
     Dates: start: 20170401, end: 20170531
  2. FOLIC ACID. [Concomitant]
     Active Substance: FOLIC ACID
  3. VITAMIN D3 [Concomitant]
     Active Substance: CHOLECALCIFEROL
  4. BABY ASPIRIN [Concomitant]
     Active Substance: ASPIRIN
  5. CENTRUM [Concomitant]
     Active Substance: VITAMINS
  6. PURPLE DISC [Concomitant]
  7. MULTI VITAMIN [Concomitant]
     Active Substance: VITAMINS
  8. L-LYSINE [Concomitant]
     Active Substance: LYSINE
  9. VITAMIN B12 [Concomitant]
     Active Substance: CYANOCOBALAMIN

REACTIONS (2)
  - Dyspnoea [None]
  - Gait inability [None]

NARRATIVE: CASE EVENT DATE: 20170526
